FAERS Safety Report 10591630 (Version 4)
Quarter: 2014Q4

REPORT INFORMATION
  Report Type: Spontaneous
  Country: US (occurrence: US)
  Receive Date: 20141118
  Receipt Date: 20141209
  Transmission Date: 20150529
  Serious: Yes (Other)
  Sender: FDA-Public Use
  Company Number: ALCN2014US006328

PATIENT
  Age: 52 Year
  Sex: Male

DRUGS (5)
  1. TETRACAINE STERI-UNITS [Suspect]
     Active Substance: TETRACAINE\TETRACAINE HYDROCHLORIDE
     Indication: INTRAOCULAR LENS IMPLANT
     Dosage: 1 UNK, UNK
     Route: 047
     Dates: start: 20141023, end: 20141023
  2. BETADINE [Suspect]
     Active Substance: POVIDONE-IODINE
     Indication: INTRAOCULAR LENS IMPLANT
     Dosage: 1 UNK, UNK
     Route: 047
     Dates: start: 20141023, end: 20141023
  3. MAXITROL [Suspect]
     Active Substance: DEXAMETHASONE\NEOMYCIN SULFATE\POLYMYXIN B SULFATE
     Indication: INTRAOCULAR LENS IMPLANT
     Dosage: 1 UNK, UNK
     Route: 047
     Dates: start: 20141023, end: 20141023
  4. LIDOCAINE. [Concomitant]
     Active Substance: LIDOCAINE
     Indication: INTRAOCULAR LENS IMPLANT
     Dosage: 1 UNK, UNK
     Route: 047
     Dates: start: 20141023, end: 20141023
  5. BSS [Suspect]
     Active Substance: CALCIUM CHLORIDE\MAGNESIUM CHLORIDE\POTASSIUM CHLORIDE\SODIUM ACETATE\SODIUM CHLORIDE\SODIUM CITRATE
     Indication: INTRAOCULAR LENS IMPLANT
     Dosage: 1 UNK, UNK
     Route: 065
     Dates: start: 20141023, end: 20141023

REACTIONS (1)
  - Endophthalmitis [Not Recovered/Not Resolved]

NARRATIVE: CASE EVENT DATE: 20141101
